FAERS Safety Report 19008425 (Version 1)
Quarter: 2021Q1

REPORT INFORMATION
  Report Type: Spontaneous
  Country: US (occurrence: US)
  Receive Date: 20210316
  Receipt Date: 20210316
  Transmission Date: 20210420
  Serious: Yes (Hospitalization)
  Sender: FDA-Public Use
  Company Number: US-FARMAPROD-202103-0308

PATIENT
  Sex: Male

DRUGS (8)
  1. GABAPENTIN. [Concomitant]
     Active Substance: GABAPENTIN
  2. GLIPIZIDE. [Concomitant]
     Active Substance: GLIPIZIDE
  3. ASPIRINE [Concomitant]
     Active Substance: ASPIRIN
  4. LEVOTHYROXINE SODIUM. [Concomitant]
     Active Substance: LEVOTHYROXINE SODIUM
  5. CARVEDILOL. [Concomitant]
     Active Substance: CARVEDILOL
  6. OXERVATE [Suspect]
     Active Substance: CENEGERMIN-BKBJ
     Indication: NEUROTROPHIC KERATOPATHY
     Route: 047
     Dates: start: 20201020, end: 20201218
  7. OFLOXACIN. [Concomitant]
     Active Substance: OFLOXACIN
  8. MONTELUKAST SODIUM. [Concomitant]
     Active Substance: MONTELUKAST SODIUM

REACTIONS (1)
  - Hospitalisation [Unknown]
